FAERS Safety Report 6409848-5 (Version None)
Quarter: 2009Q4

REPORT INFORMATION
  Report Type: 
  Country: None (occurrence: None)
  Receive Date: 20091022
  Receipt Date: 20091013
  Transmission Date: 20100525
  Serious: Yes (Other)
  Sender: FDA-Public Use
  Company Number: US-JNJFOC-20091004594

PATIENT
  Age: 18 Year
  Sex: Female
  Weight: 54.43 kg

DRUGS (2)
  1. ORTHO TRI-CYCLEN [Suspect]
     Indication: MENSTRUATION IRREGULAR
     Route: 048
  2. DAYTRANA [Concomitant]
     Indication: ATTENTION DEFICIT/HYPERACTIVITY DISORDER
     Route: 062

REACTIONS (7)
  - ABDOMINAL PAIN [None]
  - BLINDNESS UNILATERAL [None]
  - CHEST PAIN [None]
  - HEADACHE [None]
  - INTERNATIONAL NORMALISED RATIO DECREASED [None]
  - OFF LABEL USE [None]
  - PROTHROMBIN TIME SHORTENED [None]
